FAERS Safety Report 8623055-7 (Version None)
Quarter: 2012Q3

REPORT INFORMATION
  Report Type: 
  Country: None (occurrence: None)
  Receive Date: 20120827
  Receipt Date: 20120817
  Transmission Date: 20120928
  Serious: Yes (Hospitalization)
  Sender: FDA-Public Use
  Company Number: US-JNJFOC-20120612721

PATIENT
  Sex: Female

DRUGS (17)
  1. REMICADE [Suspect]
     Dosage: FREQUENCY: AT 0, 2, 6 WEEKS.  TOTAL DOSE: 200 MG
     Route: 042
     Dates: start: 20120517
  2. HUMIRA [Concomitant]
     Route: 065
  3. WARFARIN SODIUM [Concomitant]
     Route: 065
  4. OMEPRAZOLE [Concomitant]
     Route: 065
  5. POTASSIUM CITRATE [Concomitant]
     Route: 065
  6. REMICADE [Suspect]
     Indication: CROHN'S DISEASE
     Route: 042
     Dates: start: 20120627
  7. LEVOXYL [Concomitant]
     Route: 065
  8. ALL OTHER THERAPEUTICS [Concomitant]
     Route: 065
  9. VITAMIN B-12 [Concomitant]
     Route: 065
  10. FERROUS SULFATE TAB [Concomitant]
     Route: 065
  11. ATENOLOL [Concomitant]
     Route: 065
  12. CALCIMATE [Concomitant]
     Route: 065
  13. CALCIUM AND VITAMIN D3 [Concomitant]
     Dosage: 600 MG OF CALCIUM AND 800 IU OF VITAMIN D3
     Route: 065
  14. VITAMIN D [Concomitant]
     Route: 065
  15. MAGNESIUM OXIDE [Concomitant]
     Route: 065
  16. SODIUM BICARBONATE [Concomitant]
     Route: 065
  17. ALENDRONATE SODIUM [Concomitant]
     Route: 065

REACTIONS (2)
  - VIRAL INFECTION [None]
  - DIARRHOEA [None]
